FAERS Safety Report 11768448 (Version 2)
Quarter: 2015Q4

REPORT INFORMATION
  Report Type: Spontaneous
  Country: JP (occurrence: JP)
  Receive Date: 20151123
  Receipt Date: 20151230
  Transmission Date: 20160304
  Serious: Yes (Death, Hospitalization)
  Sender: FDA-Public Use
  Company Number: JP-MYLANLABS-2015M1039649

PATIENT

DRUGS (1)
  1. PREDONINE [Suspect]
     Active Substance: PREDNISOLONE\PREDNISOLONE ACETATE\PREDNISOLONE SODIUM SUCCINATE
     Indication: VASCULITIS
     Dosage: 60 MG, QD
     Route: 048

REACTIONS (2)
  - Acute respiratory distress syndrome [Fatal]
  - Disseminated tuberculosis [Fatal]
